FAERS Safety Report 5048575-6 (Version None)
Quarter: 2006Q2

REPORT INFORMATION
  Report Type: 
  Country: None (occurrence: None)
  Receive Date: 20060601
  Receipt Date: 20060307
  Transmission Date: 20061013
  Serious: No
  Sender: FDA-Public Use
  Company Number: US200603001850

PATIENT
  Age: 52 Year
  Sex: Female
  Weight: 75.3 kg

DRUGS (4)
  1. CYMBALTA [Suspect]
     Indication: DEPRESSION
     Dosage: 120 MG, DAILY (1/D)
     Dates: start: 20060214
  2. ATIVAN [Concomitant]
  3. AMBIEN [Concomitant]
  4. FAMOTIDINE [Concomitant]

REACTIONS (4)
  - FACE OEDEMA [None]
  - HYPOAESTHESIA FACIAL [None]
  - PARAESTHESIA [None]
  - WEIGHT INCREASED [None]
